FAERS Safety Report 8091999-3 (Version None)
Quarter: 2012Q1

REPORT INFORMATION
  Report Type: 
  Country: None (occurrence: None)
  Receive Date: 20120131
  Receipt Date: 20120124
  Transmission Date: 20120608
  Serious: Yes (Other)
  Sender: FDA-Public Use
  Company Number: US-JNJFOC-20120111884

PATIENT
  Sex: Female

DRUGS (6)
  1. CIPROFLOXACIN [Suspect]
     Indication: INFECTION
     Route: 065
  2. LEVAQUIN [Suspect]
     Indication: BRONCHITIS
     Route: 048
  3. XANAX [Concomitant]
     Indication: ANXIETY
     Route: 065
  4. PREDNISONE TAB [Suspect]
     Indication: STEROID THERAPY
     Route: 065
  5. LEVAQUIN [Suspect]
     Indication: SINUSITIS
     Route: 048
  6. LISINOPRIL [Concomitant]
     Indication: HYPERTENSION
     Route: 065
     Dates: start: 20091027

REACTIONS (1)
  - ROTATOR CUFF SYNDROME [None]
